FAERS Safety Report 20035494 (Version 1)
Quarter: 2021Q4

REPORT INFORMATION
  Report Type: Report from Study
  Country: US (occurrence: US)
  Receive Date: 20211104
  Receipt Date: 20211104
  Transmission Date: 20220304
  Serious: Yes (Hospitalization)
  Sender: FDA-Public Use
  Company Number: US-GILEAD-2021-0554483

PATIENT
  Sex: Male

DRUGS (4)
  1. AMBRISENTAN [Suspect]
     Active Substance: AMBRISENTAN
     Indication: Pulmonary arterial hypertension
     Dosage: 10 MG, QD
     Route: 065
     Dates: start: 20100201
  2. AMBRISENTAN [Suspect]
     Active Substance: AMBRISENTAN
     Indication: Pulmonary hypertension
  3. DILTIAZEM [Concomitant]
     Active Substance: DILTIAZEM
  4. SILDENAFIL [Concomitant]
     Active Substance: SILDENAFIL

REACTIONS (4)
  - COVID-19 [Unknown]
  - Oxygen therapy [Not Recovered/Not Resolved]
  - Dyspnoea [Not Recovered/Not Resolved]
  - Malaise [Not Recovered/Not Resolved]
